FAERS Safety Report 7449111-7 (Version None)
Quarter: 2011Q2

REPORT INFORMATION
  Report Type: 
  Country: None (occurrence: None)
  Receive Date: 20110502
  Receipt Date: 20101209
  Transmission Date: 20111010
  Serious: Yes (Hospitalization, Other)
  Sender: FDA-Public Use
  Company Number: US-BAYER-201023792NA

PATIENT
  Age: 39 Year
  Sex: Female
  Weight: 136.5 kg

DRUGS (19)
  1. PREDNISONE [Concomitant]
     Dosage: 20 MG, HS
     Dates: start: 20090501, end: 20090501
  2. PREDNISONE [Concomitant]
     Dosage: 30 MG, OM
     Dates: start: 20090501, end: 20090501
  3. CETIRIZINE HCL [Concomitant]
  4. ASMANEX TWISTHALER [Concomitant]
     Dosage: UNK
     Dates: start: 20090501
  5. BENADRYL [Concomitant]
  6. SINGULAIR [Concomitant]
  7. CLARITIN [Concomitant]
     Indication: PRURITUS
     Dosage: 10 MG ONCE A DAY AS NEEDED
     Dates: start: 20090501
  8. ATROVENT [Concomitant]
  9. XOPENEX [Concomitant]
     Indication: WHEEZING
     Dosage: UNK
     Dates: start: 20090501
  10. SINGULAIR [Concomitant]
     Dosage: 10 MG, QD
     Dates: start: 20090501
  11. IRON [Concomitant]
  12. ASMANEX TWISTHALER [Concomitant]
     Dosage: TWO PUFFS TWICE A DAY
  13. LAXATIVES [Concomitant]
     Indication: CONSTIPATION
  14. EPIPEN [Concomitant]
  15. IPRATROPIUM BROMIDE [Concomitant]
  16. DROSPIRENONE AND ETHINYL ESTRADIOL [Suspect]
     Indication: ACNE
  17. PREDNISONE [Concomitant]
  18. PERCOCET [Concomitant]
  19. XOPENEX [Concomitant]
     Dosage: 0.63 MG NEBULIZED THREE TIMES A DAY AS NEEDED
     Dates: start: 20090501

REACTIONS (2)
  - DEEP VEIN THROMBOSIS [None]
  - PULMONARY EMBOLISM [None]
